FAERS Safety Report 4401013-6 (Version None)
Quarter: 2004Q3

REPORT INFORMATION
  Report Type: 
  Country: None (occurrence: None)
  Receive Date: 20040907
  Receipt Date: 20030918
  Transmission Date: 20050211
  Serious: No
  Sender: FDA-Public Use
  Company Number: US-BRISTOL-MYERS SQUIBB COMPANY-12387304

PATIENT
  Age: 83 Year
  Sex: Male
  Weight: 73 kg

DRUGS (2)
  1. COUMADIN [Suspect]
     Indication: THROMBOSIS
     Dosage: TAKING FOR ^ABOUT 2 YEARS^; DOSE REGULATED AS PER INR LEVEL.
     Route: 048
  2. LOVENOX [Concomitant]
     Dosage: TOOK 2 DAYS BEFORE AND 3 DAYS AFTER HERNIA SURGERY (3 WEEKS AGO)

REACTIONS (1)
  - INTERNATIONAL NORMALISED RATIO DECREASED [None]
